APPROVED DRUG PRODUCT: NEOMYCIN AND POLYMYXIN B SULFATES AND BACITRACIN ZINC
Active Ingredient: BACITRACIN ZINC; NEOMYCIN SULFATE; POLYMYXIN B SULFATE
Strength: 400 UNITS/GM;EQ 3.5MG BASE/GM;10,000 UNITS/GM
Dosage Form/Route: OINTMENT;OPHTHALMIC
Application: A060764 | Product #002 | TE Code: AT
Applicant: PADAGIS US LLC
Approved: Approved Prior to Jan 1, 1982 | RLD: No | RS: No | Type: RX